FAERS Safety Report 10541801 (Version 1)
Quarter: 2014Q4

REPORT INFORMATION
  Report Type: Spontaneous
  Country: IT (occurrence: IT)
  Receive Date: 20141024
  Receipt Date: 20141024
  Transmission Date: 20150529
  Serious: Yes (Other)
  Sender: FDA-Public Use
  Company Number: IT-TEVA-516127ISR

PATIENT
  Age: 39 Year
  Sex: Female

DRUGS (1)
  1. CARBOPLATINO TEVA 600MG/60ML [Suspect]
     Active Substance: CARBOPLATIN
     Indication: OVARIAN CANCER
     Dosage: 550 MILLIGRAM DAILY;
     Route: 042
     Dates: start: 20140925, end: 20140925

REACTIONS (3)
  - Spinal pain [Recovered/Resolved]
  - Rash [Recovered/Resolved]
  - Dyspnoea [Recovered/Resolved]

NARRATIVE: CASE EVENT DATE: 20140925
